FAERS Safety Report 12959511 (Version 1)
Quarter: 2016Q4

REPORT INFORMATION
  Report Type: Report from Study
  Country: US (occurrence: US)
  Receive Date: 20161121
  Receipt Date: 20161121
  Transmission Date: 20170207
  Serious: Yes (Hospitalization, Other)
  Sender: FDA-Public Use
  Company Number: US-BAYER-2016-214022

PATIENT
  Age: 64 Year
  Sex: Male

DRUGS (2)
  1. NEXAVAR [Suspect]
     Active Substance: SORAFENIB
     Indication: HEPATOCELLULAR CARCINOMA
     Dosage: 400 MG, BID BEFORE MEALS
     Route: 048
     Dates: start: 201610, end: 2016
  2. OXYCONTIN [Concomitant]
     Active Substance: OXYCODONE HYDROCHLORIDE

REACTIONS (5)
  - Hospitalisation [Unknown]
  - Chest pain [Unknown]
  - Dyspnoea [Unknown]
  - Pulmonary thrombosis [None]
  - General physical health deterioration [None]

NARRATIVE: CASE EVENT DATE: 2016
